FAERS Safety Report 4863232-4 (Version None)
Quarter: 2005Q4

REPORT INFORMATION
  Report Type: 
  Country: None (occurrence: None)
  Receive Date: 20051219
  Receipt Date: 20051209
  Transmission Date: 20060501
  Serious: Yes (Other)
  Sender: FDA-Public Use
  Company Number: 2005167750

PATIENT
  Age: 61 Year
  Sex: Male
  Weight: 96.1626 kg

DRUGS (8)
  1. NORVASC [Suspect]
     Indication: ILL-DEFINED DISORDER
     Dosage: 5 MG (5 MG, DAILY), ORAL
     Route: 048
     Dates: start: 20000101
  2. NEURONTIN [Suspect]
     Indication: ILL-DEFINED DISORDER
     Dosage: 300 MG, INTERVAL: EVERY DAY), ORAL
     Route: 048
     Dates: start: 20030101, end: 20050101
  3. DAYPRO [Suspect]
     Indication: RHEUMATOID ARTHRITIS
     Dosage: 1200 MG (600 MG, BID INTERVAL: EVERY DAY), ORAL
     Route: 048
     Dates: start: 19940901
  4. ZANTAC [Concomitant]
  5. SEREVENT [Concomitant]
  6. FLOMAX ^CHIESI^ (MORNIFLUMATE) [Concomitant]
  7. FLOVENT [Concomitant]
  8. PAXIL [Concomitant]

REACTIONS (9)
  - ACCIDENT AT WORK [None]
  - BACK INJURY [None]
  - BACK PAIN [None]
  - BLOOD PRESSURE INCREASED [None]
  - CHEST PAIN [None]
  - CORONARY ARTERY OCCLUSION [None]
  - MOBILITY DECREASED [None]
  - PNEUMONIA [None]
  - RHEUMATOID ARTHRITIS [None]
